FAERS Safety Report 5557295-0 (Version None)
Quarter: 2007Q4

REPORT INFORMATION
  Report Type: 
  Country: None (occurrence: None)
  Receive Date: 20071214
  Receipt Date: 20071213
  Transmission Date: 20080405
  Serious: Yes (Disabling)
  Sender: FDA-Public Use
  Company Number: US-BRISTOL-MYERS SQUIBB COMPANY-13965173

PATIENT
  Age: 69 Year
  Sex: Female
  Weight: 63 kg

DRUGS (8)
  1. TAXOL [Suspect]
     Indication: BREAST CANCER
     Route: 042
     Dates: start: 20070401, end: 20070621
  2. HERCEPTIN [Suspect]
     Dosage: DOSE REDUCED TO 136 MG
     Route: 042
     Dates: start: 20070412, end: 20070719
  3. PRILOSEC [Concomitant]
  4. ASPIRIN [Concomitant]
  5. ATENOLOL [Concomitant]
  6. MULTI-VITAMIN [Concomitant]
  7. CITRACAL [Concomitant]
  8. COZAAR [Concomitant]

REACTIONS (3)
  - DEAFNESS [None]
  - SKIN TIGHTNESS [None]
  - TINNITUS [None]
